FAERS Safety Report 10996678 (Version 1)
Quarter: 2015Q2

REPORT INFORMATION
  Report Type: Spontaneous
  Country: US (occurrence: US)
  Receive Date: 20150408
  Receipt Date: 20150408
  Transmission Date: 20150821
  Serious: No
  Sender: FDA-Public Use
  Company Number: US-BIOGENIDEC-2015BI022571

PATIENT
  Sex: Female

DRUGS (2)
  1. AVONEX [Suspect]
     Active Substance: INTERFERON BETA-1A
     Indication: MULTIPLE SCLEROSIS
     Route: 030
     Dates: start: 20071022, end: 20101022
  2. AVONEX [Suspect]
     Active Substance: INTERFERON BETA-1A
     Indication: MULTIPLE SCLEROSIS
     Route: 030
     Dates: start: 20120401, end: 20140602

REACTIONS (6)
  - Injection site reaction [Unknown]
  - Cholecystectomy [Unknown]
  - Blood pressure decreased [Unknown]
  - Malaise [Unknown]
  - Nervousness [Unknown]
  - Influenza like illness [Unknown]
